FAERS Safety Report 4916330-0 (Version None)
Quarter: 2006Q1

REPORT INFORMATION
  Report Type: 
  Country: None (occurrence: None)
  Receive Date: 20060217
  Receipt Date: 20060209
  Transmission Date: 20060701
  Serious: Yes (Hospitalization)
  Sender: FDA-Public Use
  Company Number: FR-MERCK-0602FRA00025

PATIENT
  Age: 86 Year
  Sex: Male

DRUGS (7)
  1. PROSCAR [Suspect]
     Indication: BENIGN PROSTATIC HYPERPLASIA
     Route: 048
  2. AMIODARONE [Suspect]
     Indication: ARRHYTHMIA PROPHYLAXIS
     Route: 048
  3. TIANEPTINE SODIUM [Concomitant]
     Route: 048
  4. CLOPIDOGREL BISULFATE [Concomitant]
     Indication: THROMBOSIS PROPHYLAXIS
     Route: 048
  5. ZOPICLONE [Concomitant]
     Indication: INSOMNIA
     Route: 048
  6. CYAMEMAZINE [Suspect]
     Indication: PSYCHOTIC DISORDER
     Route: 048
     Dates: end: 20060115
  7. PRAVASTATIN SODIUM [Concomitant]
     Route: 048

REACTIONS (1)
  - EXTRAPYRAMIDAL DISORDER [None]
